FAERS Safety Report 4307396-X (Version None)
Quarter: 2004Q1

REPORT INFORMATION
  Report Type: 
  Country: None (occurrence: None)
  Receive Date: 20040226
  Receipt Date: 20040216
  Transmission Date: 20041129
  Serious: Yes (Other)
  Sender: FDA-Public Use
  Company Number: 2004194599JP

PATIENT
  Age: 14 Year
  Sex: Male
  Weight: 48 kg

DRUGS (3)
  1. GENOTROPIN [Suspect]
     Indication: HYPOPITUITARISM
     Dosage: 0.9 MG/DAY, SUBCUTANEOUS; 1 MG/DAY, SUBCUTANEOUS; 1.2 MG/DAY, SUBCUTANEOUS
     Route: 058
     Dates: start: 20020808, end: 20030417
  2. GENOTROPIN [Suspect]
     Indication: HYPOPITUITARISM
     Dosage: 0.9 MG/DAY, SUBCUTANEOUS; 1 MG/DAY, SUBCUTANEOUS; 1.2 MG/DAY, SUBCUTANEOUS
     Route: 058
     Dates: start: 20030418, end: 20031016
  3. GENOTROPIN [Suspect]
     Indication: HYPOPITUITARISM
     Dosage: 0.9 MG/DAY, SUBCUTANEOUS; 1 MG/DAY, SUBCUTANEOUS; 1.2 MG/DAY, SUBCUTANEOUS
     Route: 058
     Dates: start: 20031017, end: 20031208

REACTIONS (3)
  - CONVULSION [None]
  - FEELING JITTERY [None]
  - SYNCOPE [None]
